FAERS Safety Report 24953630 (Version 1)
Quarter: 2025Q1

REPORT INFORMATION
  Report Type: Spontaneous
  Country: SE (occurrence: SE)
  Receive Date: 20250211
  Receipt Date: 20250211
  Transmission Date: 20250408
  Serious: Yes (Other)
  Sender: ALKEM
  Company Number: SE-ALKEM LABORATORIES LIMITED-SE-ALKEM-2025-01272

PATIENT

DRUGS (1)
  1. MESALAMINE [Suspect]
     Active Substance: MESALAMINE
     Indication: Product used for unknown indication
     Route: 064

REACTIONS (3)
  - Hydrops foetalis [Unknown]
  - Foetal anaemia [Unknown]
  - Foetal exposure during pregnancy [Unknown]
